FAERS Safety Report 5209307-1 (Version None)
Quarter: 2007Q1

REPORT INFORMATION
  Report Type: 
  Country: None (occurrence: None)
  Receive Date: 20070111
  Receipt Date: 20061229
  Transmission Date: 20070707
  Serious: Yes (Hospitalization)
  Sender: FDA-Public Use
  Company Number: 2007-152434-NL

PATIENT
  Age: 36 Year
  Sex: Female
  Weight: 55.8 kg

DRUGS (2)
  1. NUVARING [Suspect]
     Indication: CONTRACEPTION
     Dosage: VAGINAL
     Route: 067
     Dates: start: 20061211
  2. LAMICTAL [Concomitant]

REACTIONS (3)
  - APPENDICITIS [None]
  - METRORRHAGIA [None]
  - VAGINAL DISCHARGE [None]
